FAERS Safety Report 18307659 (Version 1)
Quarter: 2020Q3

REPORT INFORMATION
  Report Type: Report from Study
  Country: DE (occurrence: DE)
  Receive Date: 20200924
  Receipt Date: 20200924
  Transmission Date: 20201103
  Serious: Yes (Other)
  Sender: FDA-Public Use
  Company Number: DE-MYLANLABS-2020M1080135

PATIENT
  Sex: Female
  Weight: 136 kg

DRUGS (2)
  1. CERAZETTE                          /00754001/ [Suspect]
     Active Substance: DESOGESTREL
     Indication: HORMONAL CONTRACEPTION
     Dosage: UNK
     Dates: start: 2000, end: 2010
  2. METOPROLOL. [Suspect]
     Active Substance: METOPROLOL
     Indication: HYPERTENSION
     Dosage: UNK

REACTIONS (1)
  - Venous thrombosis [Unknown]

NARRATIVE: CASE EVENT DATE: 202005
